FAERS Safety Report 18018348 (Version 1)
Quarter: 2020Q3

REPORT INFORMATION
  Report Type: Spontaneous
  Country: US (occurrence: US)
  Receive Date: 20200713
  Receipt Date: 20200713
  Transmission Date: 20201103
  Serious: No
  Sender: FDA-Public Use
  Company Number: None

PATIENT

DRUGS (2)
  1. DEPO?MEDROL [Suspect]
     Active Substance: METHYLPREDNISOLONE ACETATE
  2. SOLU?MEDROL [Suspect]
     Active Substance: METHYLPREDNISOLONE SODIUM SUCCINATE

REACTIONS (3)
  - Wrong product administered [None]
  - Product selection error [None]
  - Wrong technique in product usage process [None]
